FAERS Safety Report 14119893 (Version 1)
Quarter: 2017Q4

REPORT INFORMATION
  Report Type: Report from Study
  Country: GB (occurrence: GB)
  Receive Date: 20171024
  Receipt Date: 20171024
  Transmission Date: 20180321
  Serious: Yes (Death, Other)
  Sender: FDA-Public Use
  Company Number: GB-ROCHE-1920365

PATIENT

DRUGS (3)
  1. ALTEPLASE. [Suspect]
     Active Substance: ALTEPLASE
     Indication: THROMBOLYSIS
     Route: 065
  2. HEPARIN [Suspect]
     Active Substance: HEPARIN SODIUM
     Indication: THROMBOLYSIS
     Route: 042
  3. RETEPLASE [Suspect]
     Active Substance: RETEPLASE
     Indication: THROMBOLYSIS
     Route: 065

REACTIONS (3)
  - Haemorrhage [Unknown]
  - Haemorrhage intracranial [Fatal]
  - Pericardial haemorrhage [Fatal]
